FAERS Safety Report 12141099 (Version 1)
Quarter: 2016Q1

REPORT INFORMATION
  Report Type: Spontaneous
  Country: US (occurrence: US)
  Receive Date: 20160303
  Receipt Date: 20160303
  Transmission Date: 20160526
  Serious: No
  Sender: FDA-Public Use
  Company Number: US-BAUSCH-BL-2015-017847

PATIENT
  Age: 75 Year
  Sex: Male
  Weight: 65.83 kg

DRUGS (3)
  1. EDECRIN [Suspect]
     Active Substance: ETHACRYNIC ACID
     Indication: DIURETIC THERAPY
     Route: 048
     Dates: start: 201507
  2. CALCIUM [Concomitant]
     Active Substance: CALCIUM
     Indication: MINERAL SUPPLEMENTATION
     Route: 048
  3. EDECRIN [Suspect]
     Active Substance: ETHACRYNIC ACID
     Indication: SWELLING

REACTIONS (6)
  - Weight decreased [Not Recovered/Not Resolved]
  - Dyspnoea [Not Recovered/Not Resolved]
  - Dizziness [Not Recovered/Not Resolved]
  - Drug ineffective [Not Recovered/Not Resolved]
  - Gait disturbance [Not Recovered/Not Resolved]
  - Vomiting [Not Recovered/Not Resolved]

NARRATIVE: CASE EVENT DATE: 201506
